FAERS Safety Report 18489632 (Version 1)
Quarter: 2020Q4

REPORT INFORMATION
  Report Type: Spontaneous
  Country: US (occurrence: US)
  Receive Date: 20201110
  Receipt Date: 20201110
  Transmission Date: 20210114
  Serious: Yes (Other)
  Sender: FDA-Public Use
  Company Number: None

PATIENT
  Age: 66 Year
  Sex: Female
  Weight: 76.5 kg

DRUGS (1)
  1. NORVASC [Suspect]
     Active Substance: AMLODIPINE BESYLATE
     Indication: BLOOD PRESSURE ABNORMAL
     Dosage: ?
     Route: 048
     Dates: start: 20200211, end: 20200213

REACTIONS (3)
  - Cystitis [None]
  - Product substitution issue [None]
  - Fungal infection [None]

NARRATIVE: CASE EVENT DATE: 20200212
